FAERS Safety Report 9646516 (Version 3)
Quarter: 2013Q4

REPORT INFORMATION
  Report Type: Spontaneous
  Country: GB (occurrence: GB)
  Receive Date: 20131025
  Receipt Date: 20131105
  Transmission Date: 20140711
  Serious: Yes (Life-Threatening, Other)
  Sender: FDA-Public Use
  Company Number: GB-ROCHE-1293801

PATIENT
  Age: 47 Year
  Sex: Female
  Weight: 85 kg

DRUGS (9)
  1. XOLAIR [Suspect]
     Indication: PRODUCT USED FOR UNKNOWN INDICATION
     Route: 065
     Dates: start: 20131014
  2. XOLAIR [Suspect]
     Dosage: SYRINGE 2 DOSAGE FORM
     Route: 058
     Dates: start: 20120813
  3. INFLUENZA VIRUS VACCINE, TRIVALENT [Suspect]
     Indication: PRODUCT USED FOR UNKNOWN INDICATION
     Route: 065
     Dates: start: 20131012
  4. SYMBICORT [Concomitant]
  5. MONTELUKAST [Concomitant]
  6. THEOPHYLLIN [Concomitant]
  7. MIRTAZAPINE [Concomitant]
  8. SALBUTAMOL [Concomitant]
  9. PROPRANOLOL [Concomitant]

REACTIONS (5)
  - Apparent death [Recovered/Resolved]
  - Dyspnoea [Unknown]
  - Wheezing [Unknown]
  - Respiratory distress [Unknown]
  - Malaise [Unknown]
